FAERS Safety Report 5120197-8 (Version None)
Quarter: 2006Q3

REPORT INFORMATION
  Report Type: 
  Country: None (occurrence: None)
  Receive Date: 20060928
  Receipt Date: 20060920
  Transmission Date: 20061208
  Serious: Yes (Other)
  Sender: FDA-Public Use
  Company Number: 230099

PATIENT
  Age: 59 Year
  Sex: Female
  Weight: 57 kg

DRUGS (11)
  1. RITUXIMAB (RITUXIMAB) CONC FOR SOLUTION FOR INFUSION [Suspect]
     Indication: NON-HODGKIN'S LYMPHOMA
     Dosage: 540 MG, INTRAVENOUS
     Route: 042
     Dates: start: 20050203
  2. MITOXANTRONE [Concomitant]
  3. VINDESINE SULFATE (VINDESINE SULFATE) [Concomitant]
  4. RANIMUSTINE (RANIMUSTINE) [Concomitant]
  5. METHYLPREDNISOLONE [Concomitant]
  6. CARBOPLATIN [Concomitant]
  7. ETOPOSIDE [Concomitant]
  8. MANNITOL [Concomitant]
  9. ADENINE (ADENINE) [Concomitant]
  10. PHOSPHATE (PHOSPHATE NOS) [Concomitant]
  11. PLATELETS [Concomitant]

REACTIONS (4)
  - COMPUTERISED TOMOGRAM ABNORMAL [None]
  - DEEP VEIN THROMBOSIS [None]
  - PLEURAL EFFUSION [None]
  - PULMONARY EMBOLISM [None]
